FAERS Safety Report 18364324 (Version 1)
Quarter: 2020Q4

REPORT INFORMATION
  Report Type: Spontaneous
  Country: HR (occurrence: HR)
  Receive Date: 20201009
  Receipt Date: 20201009
  Transmission Date: 20210114
  Serious: Yes (Other)
  Sender: FDA-Public Use
  Company Number: HR-TEVA-2020-HR-1836506

PATIENT
  Sex: Female

DRUGS (1)
  1. PREGABALIN PLIVA 75 MG [Suspect]
     Active Substance: PREGABALIN
     Indication: SCIATICA
     Route: 065

REACTIONS (1)
  - Homicidal ideation [Unknown]
